FAERS Safety Report 5981758-7 (Version None)
Quarter: 2008Q4

REPORT INFORMATION
  Report Type: 
  Country: None (occurrence: None)
  Receive Date: 20081205
  Receipt Date: 20081127
  Transmission Date: 20090506
  Serious: Yes (Death, Other)
  Sender: FDA-Public Use
  Company Number: US-KINGPHARMUSA00001-K200801354

PATIENT
  Age: 40 Year
  Sex: Male

DRUGS (4)
  1. ALTACE [Suspect]
     Indication: CHEST PAIN
     Dosage: UNK
     Route: 048
     Dates: start: 20060101, end: 20060101
  2. APROVEL [Suspect]
     Indication: HYPERTENSION
     Dosage: UNK
     Dates: start: 20070901
  3. LISINOPRIL [Suspect]
     Indication: HYPERTENSION
     Dosage: UNK
     Dates: start: 20060601, end: 20060101
  4. PERINDOPRIL [Suspect]
     Indication: CHEST PAIN
     Dosage: UNK
     Dates: start: 20060101, end: 20060101

REACTIONS (6)
  - ACUTE CORONARY SYNDROME [None]
  - ARTERIOSCLEROSIS CORONARY ARTERY [None]
  - ARTERIOSPASM CORONARY [None]
  - ARTERITIS CORONARY [None]
  - HYPERSENSITIVITY [None]
  - LEUKOCYTOSIS [None]
